FAERS Safety Report 18541968 (Version 2)
Quarter: 2020Q4

REPORT INFORMATION
  Report Type: Spontaneous
  Country: US (occurrence: US)
  Receive Date: 20201124
  Receipt Date: 20201203
  Transmission Date: 20210114
  Serious: No
  Sender: FDA-Public Use
  Company Number: US-BAYER-2020-250700

PATIENT
  Age: 68 Year
  Sex: Female
  Weight: 84.82 kg

DRUGS (1)
  1. CLARITIN [Suspect]
     Active Substance: LORATADINE
     Indication: ANAPHYLACTIC REACTION
     Dosage: UNK

REACTIONS (1)
  - Drug ineffective for unapproved indication [Unknown]
